FAERS Safety Report 10921381 (Version 1)
Quarter: 2015Q1

REPORT INFORMATION
  Report Type: Spontaneous
  Country: US (occurrence: None)
  Receive Date: 20150312
  Receipt Date: 20150312
  Transmission Date: 20150721
  Serious: Yes (Other)
  Sender: FDA-Public Use
  Company Number: 2778448

PATIENT
  Age: 81 Year
  Sex: Male

DRUGS (2)
  1. CARBOPLATIN. [Suspect]
     Active Substance: CARBOPLATIN
     Indication: MESOTHELIOMA
  2. PEMETREXED [Suspect]
     Active Substance: PEMETREXED
     Indication: MESOTHELIOMA

REACTIONS (2)
  - Weight decreased [None]
  - Superior mesenteric artery syndrome [None]
